FAERS Safety Report 5456680-5 (Version None)
Quarter: 2007Q3

REPORT INFORMATION
  Report Type: 
  Country: None (occurrence: None)
  Receive Date: 20070918
  Receipt Date: 20070430
  Transmission Date: 20080115
  Serious: No
  Sender: FDA-Public Use
  Company Number: US-ASTRAZENECA-2006UW25462

PATIENT
  Sex: Male
  Weight: 97.3 kg

DRUGS (3)
  1. SEROQUEL [Suspect]
     Indication: ANXIETY
     Dosage: 25 MG TO 350 MG
     Route: 048
     Dates: start: 20011201, end: 20060201
  2. SEROQUEL [Suspect]
     Indication: DEPRESSION
     Dosage: 25 MG TO 350 MG
     Route: 048
     Dates: start: 20011201, end: 20060201
  3. SEROQUEL [Suspect]
     Indication: SLEEP DISORDER
     Dosage: 25 MG TO 350 MG
     Route: 048
     Dates: start: 20011201, end: 20060201

REACTIONS (5)
  - CONFUSIONAL STATE [None]
  - DIABETES MELLITUS [None]
  - MENTAL DISORDER [None]
  - MUSCLE SPASMS [None]
  - NIGHTMARE [None]
